FAERS Safety Report 8916976 (Version 1)
Quarter: 2012Q4

REPORT INFORMATION
  Report Type: 
  Country: US (occurrence: US)
  Receive Date: 20121120
  Receipt Date: 20121120
  Transmission Date: 20130627
  Serious: No
  Sender: FDA-Public Use
  Company Number: US-PFIZER INC-2012269314

PATIENT
  Age: 36 Year
  Sex: Male
  Weight: 124.72 kg

DRUGS (2)
  1. EFFEXOR [Suspect]
     Indication: FEELING SAD
     Dosage: 37.5 mg, 1x/day
     Route: 048
     Dates: start: 2012
  2. PRILOSEC [Concomitant]
     Indication: ACID REFLUX (ESOPHAGEAL)
     Dosage: UNK

REACTIONS (5)
  - Disorientation [Not Recovered/Not Resolved]
  - Dizziness [Not Recovered/Not Resolved]
  - Feeling drunk [Not Recovered/Not Resolved]
  - Agitation [Not Recovered/Not Resolved]
  - Violence-related symptom [Not Recovered/Not Resolved]
